FAERS Safety Report 8816496 (Version 1)
Quarter: 2012Q4

REPORT INFORMATION
  Report Type: Spontaneous
  Country: FR (occurrence: None)
  Receive Date: 20120927
  Receipt Date: 20120927
  Transmission Date: 20130627
  Serious: Yes (Other)
  Sender: FDA-Public Use
  Company Number: NGX_01155_2012

PATIENT
  Age: 62 Year
  Sex: Male

DRUGS (1)
  1. QUTENZA [Suspect]
     Indication: NEUROPATHY PERIPHERAL
     Dosage: (patch, applied on the thighs) Topical
     Route: 061
     Dates: start: 20120606, end: 20120606

REACTIONS (8)
  - Hypersensitivity [None]
  - Blister [None]
  - Application site hyperaesthesia [None]
  - Application site erythema [None]
  - Genital rash [None]
  - Plantar erythema [None]
  - Thermal burn [None]
  - Skin exfoliation [None]
